FAERS Safety Report 7941667-0 (Version None)
Quarter: 2011Q4

REPORT INFORMATION
  Report Type: 
  Country: None (occurrence: None)
  Receive Date: 20111128
  Receipt Date: 20111128
  Transmission Date: 20120403
  Serious: Yes (Other)
  Sender: FDA-Public Use
  Company Number: None

PATIENT
  Age: 55 Year
  Sex: Male
  Weight: 97.068 kg

DRUGS (10)
  1. FLOMAX [Concomitant]
  2. VICTOZA [Suspect]
     Indication: GLYCOSYLATED HAEMOGLOBIN INCREASED
     Dosage: 1.2 MG
     Route: 058
     Dates: start: 20110824, end: 20111121
  3. METFORMIN HCL [Concomitant]
  4. LISINOPRIL [Concomitant]
  5. ASPIRIN [Concomitant]
  6. ZOCOR [Concomitant]
  7. ATENOLOL [Concomitant]
  8. JANUVIA [Concomitant]
  9. GLIPIZIDE [Concomitant]
  10. VERAPAMIL [Concomitant]

REACTIONS (1)
  - LABORATORY TEST ABNORMAL [None]
